FAERS Safety Report 4741348-0 (Version None)
Quarter: 2005Q3

REPORT INFORMATION
  Report Type: 
  Country: None (occurrence: None)
  Receive Date: 20050808
  Receipt Date: 20050726
  Transmission Date: 20060218
  Serious: Yes (Hospitalization, Other)
  Sender: FDA-Public Use
  Company Number: USA0507103814

PATIENT
  Age: 63 Year
  Sex: Male
  Weight: 67 kg

DRUGS (4)
  1. HUMALOG [Suspect]
     Dosage: 4 U
     Dates: start: 20020101
  2. HUMULIN N [Suspect]
     Dosage: 23 U DAY
     Dates: start: 20020101, end: 20050601
  3. HUMULIN R [Suspect]
     Dosage: UNK
     Route: 065
     Dates: start: 20000101, end: 20020101
  4. LANTUS          (INSULIN GLARINE) [Concomitant]

REACTIONS (15)
  - ANAEMIA [None]
  - ASTHENIA [None]
  - BLINDNESS UNILATERAL [None]
  - BLOOD GLUCOSE INCREASED [None]
  - CATARACT [None]
  - DEPRESSION [None]
  - DIABETIC COMA [None]
  - FEELING OF DESPAIR [None]
  - GLAUCOMA [None]
  - HYPERMETROPIA [None]
  - HYPOTHYROIDISM [None]
  - OSTEOARTHRITIS [None]
  - PHARMACEUTICAL PRODUCT COMPLAINT [None]
  - RETINAL DETACHMENT [None]
  - SCOLIOSIS [None]
